FAERS Safety Report 9781728 (Version 1)
Quarter: 2013Q4

REPORT INFORMATION
  Report Type: Spontaneous
  Country: US (occurrence: US)
  Receive Date: 20131224
  Receipt Date: 20131224
  Transmission Date: 20140711
  Serious: No
  Sender: FDA-Public Use
  Company Number: US-TEVA-446655USA

PATIENT
  Sex: Female

DRUGS (3)
  1. PROAIR HFA [Suspect]
     Indication: ASTHMA
     Route: 055
  2. PROAIR HFA [Suspect]
     Indication: BRONCHITIS
  3. XANAX [Concomitant]

REACTIONS (6)
  - Heart rate increased [Unknown]
  - Tremor [Unknown]
  - Nervousness [Unknown]
  - Cold sweat [Unknown]
  - Panic attack [Unknown]
  - Feeling of despair [Unknown]
